FAERS Safety Report 4446526-6 (Version None)
Quarter: 2004Q3

REPORT INFORMATION
  Report Type: 
  Country: None (occurrence: None)
  Receive Date: 20040902
  Receipt Date: 20040820
  Transmission Date: 20050211
  Serious: Yes (Life-Threatening, Hospitalization)
  Sender: FDA-Public Use
  Company Number: 207358

PATIENT
  Age: 47 Year
  Sex: Male
  Weight: 105.9 kg

DRUGS (6)
  1. MABTHERA (RITUXIMAB) CONC FOR SOLUTION FOR INFUSION [Suspect]
     Indication: NON-HODGKIN'S LYMPHOMA
     Dosage: 750 MG, INTRAVENOUS
     Route: 042
     Dates: start: 20040615
  2. IFOSFAMIDE [Concomitant]
  3. CARBOPLATIN [Concomitant]
  4. ETOPOSIDE [Concomitant]
  5. LANSOPRAZOLE [Concomitant]
  6. MAGIC MOUTH WASH (MOUTHWASH NOS) [Concomitant]

REACTIONS (1)
  - INTESTINAL OBSTRUCTION [None]
